FAERS Safety Report 5896203-X (Version None)
Quarter: 2008Q3

REPORT INFORMATION
  Report Type: 
  Country: None (occurrence: None)
  Receive Date: 20080924
  Receipt Date: 20080313
  Transmission Date: 20090109
  Serious: Yes (Hospitalization)
  Sender: FDA-Public Use
  Company Number: US-ASTRAZENECA-2007UW18302

PATIENT
  Sex: Male

DRUGS (1)
  1. SEROQUEL [Suspect]
     Indication: SCHIZOPHRENIA
     Route: 048
     Dates: start: 19990101, end: 20040101

REACTIONS (2)
  - DIABETES MELLITUS [None]
  - PANCREATITIS ACUTE [None]
